FAERS Safety Report 7347891-2 (Version None)
Quarter: 2011Q1

REPORT INFORMATION
  Report Type: 
  Country: None (occurrence: None)
  Receive Date: 20110311
  Receipt Date: 20110301
  Transmission Date: 20110831
  Serious: Yes (Hospitalization)
  Sender: FDA-Public Use
  Company Number: US-PFIZER INC-2011045226

PATIENT
  Age: 82 Year
  Sex: Female
  Weight: 81.6 kg

DRUGS (5)
  1. ADVIL [Interacting]
     Indication: NECK PAIN
     Dosage: 1 DF, 1X/DAY
     Route: 048
     Dates: start: 20110129, end: 20110129
  2. MULTIVITAMIN [Suspect]
  3. WARFARIN SODIUM [Interacting]
     Indication: COAGULOPATHY
     Dosage: 500 MG, DAILY
     Route: 048
     Dates: start: 20000101, end: 20110201
  4. FOLIC ACID [Concomitant]
     Dosage: UNK
  5. HYDROCHLOROTHIAZIDE [Concomitant]
     Dosage: UNK

REACTIONS (3)
  - HAEMORRHAGE [None]
  - DRUG LEVEL ABOVE THERAPEUTIC [None]
  - DRUG INTERACTION [None]
